FAERS Safety Report 26215010 (Version 1)
Quarter: 2025Q4

REPORT INFORMATION
  Report Type: Spontaneous
  Country: US (occurrence: US)
  Receive Date: 20251230
  Receipt Date: 20251230
  Transmission Date: 20260117
  Serious: No
  Sender: Pyros Pharmaceuticals
  Company Number: US-PYROS PHARMACEUTICALS, INC-20251001284

PATIENT
  Age: 2 Year
  Sex: Male

DRUGS (1)
  1. VIGAFYDE [Suspect]
     Active Substance: VIGABATRIN
     Indication: Infantile spasms
     Dosage: 900 MG, BID  (9 ML)
     Route: 048
     Dates: start: 20250930

REACTIONS (4)
  - Abnormal behaviour [Not Recovered/Not Resolved]
  - Retching [Recovered/Resolved]
  - Insomnia [Not Recovered/Not Resolved]
  - Vomiting [Recovered/Resolved]

NARRATIVE: CASE EVENT DATE: 20251001
